FAERS Safety Report 8709038 (Version 4)
Quarter: 2023Q1

REPORT INFORMATION
  Report Type: Spontaneous
  Country: US (occurrence: None)
  Receive Date: 20120806
  Receipt Date: 20230110
  Transmission Date: 20230418
  Serious: Yes (Other)
  Sender: FDA-Public Use
  Company Number: US-ROCHE-1096488

PATIENT
  Age: 63 Year
  Sex: Female
  Weight: 72.186 kg

DRUGS (3)
  1. BONIVA [Suspect]
     Active Substance: IBANDRONATE SODIUM
     Indication: Osteopenia
     Route: 048
     Dates: start: 20051206, end: 20111118
  2. FOSAMAX [Suspect]
     Active Substance: ALENDRONATE SODIUM
     Indication: Osteoporosis
     Route: 048
     Dates: start: 19960124, end: 20030415
  3. ACTONEL [Suspect]
     Active Substance: RISEDRONATE SODIUM
     Indication: Osteoporosis
     Route: 048
     Dates: start: 20030415, end: 20051206

REACTIONS (25)
  - Femur fracture [Unknown]
  - Osteogenesis imperfecta [Unknown]
  - Low turnover osteopathy [Unknown]
  - Emotional distress [Unknown]
  - Anxiety [Unknown]
  - Depression [Unknown]
  - Stress fracture [Unknown]
  - Joint range of motion decreased [Unknown]
  - Somnolence [Unknown]
  - Skin discolouration [Unknown]
  - Visual impairment [Unknown]
  - Neoplasm [Unknown]
  - Back pain [Unknown]
  - Pain [Unknown]
  - Pain in extremity [Unknown]
  - Rectal haemorrhage [Unknown]
  - Oedema peripheral [Unknown]
  - Constipation [Unknown]
  - Photosensitivity reaction [Unknown]
  - Rash [Unknown]
  - Alopecia [Unknown]
  - Urticaria [Unknown]
  - Cough [Unknown]
  - Arthralgia [Unknown]
  - Sinusitis [Unknown]

NARRATIVE: CASE EVENT DATE: 20070126
